FAERS Safety Report 6208205-4 (Version None)
Quarter: 2009Q2

REPORT INFORMATION
  Report Type: 
  Country: None (occurrence: None)
  Receive Date: 20090529
  Receipt Date: 20090520
  Transmission Date: 20091009
  Serious: Yes (Other)
  Sender: FDA-Public Use
  Company Number: PHEH2009US05201

PATIENT
  Age: 72 Year
  Sex: Male

DRUGS (2)
  1. DIOVAN HCT [Suspect]
  2. EXFORGE [Suspect]
     Dosage: 10/320 MG
     Dates: start: 20090420, end: 20090424

REACTIONS (3)
  - ABASIA [None]
  - DYSSTASIA [None]
  - MALAISE [None]
